FAERS Safety Report 9983425 (Version 1)
Quarter: 2014Q1

REPORT INFORMATION
  Report Type: Spontaneous
  Country: US (occurrence: US)
  Receive Date: 20140307
  Receipt Date: 20140307
  Transmission Date: 20141002
  Serious: No
  Sender: FDA-Public Use
  Company Number: US-TEVA-467308USA

PATIENT
  Age: 16 Year
  Sex: Female
  Weight: 61.74 kg

DRUGS (3)
  1. PARAGARD 380A [Suspect]
     Indication: CONTRACEPTION
     Route: 015
     Dates: start: 20131216, end: 20140106
  2. MOTRIN [Concomitant]
     Indication: MUSCLE SPASMS
  3. TRILEPTAL [Concomitant]
     Indication: CONVULSION

REACTIONS (1)
  - Device expulsion [Recovered/Resolved]
